FAERS Safety Report 18240453 (Version 1)
Quarter: 2020Q3

REPORT INFORMATION
  Report Type: Spontaneous
  Country: US (occurrence: US)
  Receive Date: 20200904
  Receipt Date: 20200904
  Transmission Date: 20201103
  Serious: No
  Sender: FDA-Public Use
  Company Number: None

PATIENT
  Age: 61 Year
  Sex: Female

DRUGS (1)
  1. STELARA [Suspect]
     Active Substance: USTEKINUMAB
     Indication: OSTEOARTHRITIS
     Dosage: OTHER FREQUENCY:EVERY 12 WEEKS;?
     Route: 058
     Dates: start: 202008

REACTIONS (1)
  - Back pain [None]

NARRATIVE: CASE EVENT DATE: 20200819
